FAERS Safety Report 8973870 (Version 1)
Quarter: 2012Q4

REPORT INFORMATION
  Report Type: 
  Country: TW (occurrence: TW)
  Receive Date: 20121218
  Receipt Date: 20121218
  Transmission Date: 20130627
  Serious: Yes (Hospitalization)
  Sender: FDA-Public Use
  Company Number: PHHY2012TW113633

PATIENT
  Age: 55 Year
  Sex: Male

DRUGS (4)
  1. BACLOFEN [Suspect]
     Indication: MUSCLE CONTRACTURE
     Dosage: 10 mg, BID
  2. BACLOFEN [Suspect]
     Dosage: 420 mg, UNK
  3. IRBESARTAN [Suspect]
     Dosage: 150 mg, QD
  4. IRBESARTAN [Suspect]
     Dosage: 1050 mg,

REACTIONS (6)
  - Leukocytosis [Unknown]
  - Aggression [Unknown]
  - Coma [Recovered/Resolved]
  - Respiratory depression [Unknown]
  - Toxicity to various agents [Unknown]
  - Overdose [Unknown]
